FAERS Safety Report 6310652-7 (Version None)
Quarter: 2009Q3

REPORT INFORMATION
  Report Type: 
  Country: None (occurrence: None)
  Receive Date: 20090810
  Receipt Date: 20090803
  Transmission Date: 20100115
  Serious: Yes (Other)
  Sender: FDA-Public Use
  Company Number: 2009AL005137

PATIENT
  Age: 52 Year
  Sex: Female

DRUGS (9)
  1. CLINDAMYCIN PHOSPHATE TOPICAL SOLUTION USP, 1% BASE [Suspect]
     Indication: POSTOPERATIVE CARE
     Dosage: 600 MG; IV
     Route: 042
     Dates: start: 20090707, end: 20090708
  2. ACETAMINOPHEN AND CODEINE PHOSPHATE [Suspect]
  3. BISOPROLOL [Concomitant]
  4. CHLORPHENIRAMINE MALEATE [Concomitant]
  5. CITALOPRAM HYDROBROMIDE [Concomitant]
  6. DICLOFENAC [Concomitant]
  7. FERROUS FUMARATE [Concomitant]
  8. SENNA [Concomitant]
  9. SIMVASTATIN [Concomitant]

REACTIONS (1)
  - STEVENS-JOHNSON SYNDROME [None]
